FAERS Safety Report 21697964 (Version 1)
Quarter: 2022Q4

REPORT INFORMATION
  Report Type: Spontaneous
  Country: US (occurrence: US)
  Receive Date: 20221208
  Receipt Date: 20221208
  Transmission Date: 20230112
  Serious: No
  Sender: FDA-Public Use
  Company Number: US-CADILA HEALTHCARE LIMITED-US-ZYDUS-082824

PATIENT

DRUGS (3)
  1. URSODIOL [Suspect]
     Active Substance: URSODIOL
     Indication: Primary biliary cholangitis
     Dosage: UNK, UNK
     Route: 065
  2. OCALIVA [Suspect]
     Active Substance: OBETICHOLIC ACID
     Indication: Primary biliary cholangitis
     Dosage: 5 MILLIGRAM, QD
     Route: 048
     Dates: start: 201711, end: 20210609
  3. OCALIVA [Suspect]
     Active Substance: OBETICHOLIC ACID
     Dosage: 10 MILLIGRAM, QD
     Route: 048
     Dates: start: 20210609

REACTIONS (5)
  - Drug ineffective [Unknown]
  - Yellow skin [Not Recovered/Not Resolved]
  - Chromaturia [Recovered/Resolved]
  - Blood alkaline phosphatase abnormal [Recovered/Resolved]
  - Ocular icterus [Recovered/Resolved]

NARRATIVE: CASE EVENT DATE: 20210805
